FAERS Safety Report 19802833 (Version 1)
Quarter: 2021Q3

REPORT INFORMATION
  Report Type: Spontaneous
  Country: US (occurrence: US)
  Receive Date: 20210908
  Receipt Date: 20210908
  Transmission Date: 20211014
  Serious: Yes (Death, Hospitalization, Other)
  Sender: FDA-Public Use
  Company Number: US-GLAXOSMITHKLINE-US2021190746

PATIENT
  Age: 69 Year
  Sex: Male

DRUGS (1)
  1. BREO ELLIPTA [Suspect]
     Active Substance: FLUTICASONE FUROATE\VILANTEROL TRIFENATATE
     Indication: DYSPNOEA
     Dosage: 1 DF, QD
     Dates: start: 20200401

REACTIONS (4)
  - COVID-19 pneumonia [Fatal]
  - Pulmonary sepsis [Fatal]
  - Respiratory failure [Fatal]
  - Coronavirus infection [Unknown]

NARRATIVE: CASE EVENT DATE: 20210812
